FAERS Safety Report 17622352 (Version 1)
Quarter: 2020Q2

REPORT INFORMATION
  Report Type: Report from Study
  Country: US (occurrence: US)
  Receive Date: 20200403
  Receipt Date: 20200403
  Transmission Date: 20200713
  Serious: Yes (Hospitalization)
  Sender: FDA-Public Use
  Company Number: US-EISAI MEDICAL RESEARCH-EC-2020-071189

PATIENT
  Age: 72 Year
  Sex: Female
  Weight: 66 kg

DRUGS (11)
  1. LENVIMA [Suspect]
     Active Substance: LENVATINIB
     Indication: RENAL CANCER
     Route: 048
     Dates: start: 20200214, end: 20200326
  2. AFINITOR [Concomitant]
     Active Substance: EVEROLIMUS
  3. IRON [Concomitant]
     Active Substance: IRON
  4. MAGNESIUM [Concomitant]
     Active Substance: MAGNESIUM
  5. VITAMIN D3 [Concomitant]
     Active Substance: CHOLECALCIFEROL
  6. PANTOPRAZOLE SODIUM. [Concomitant]
     Active Substance: PANTOPRAZOLE SODIUM
  7. PREDNISONE. [Concomitant]
     Active Substance: PREDNISONE
  8. FISH OIL [Concomitant]
     Active Substance: FISH OIL
  9. CALCIUM CITRATE [Concomitant]
     Active Substance: CALCIUM CITRATE
  10. LISINOPRIL. [Concomitant]
     Active Substance: LISINOPRIL
  11. CENTRUM SLIVER WOMENS [Concomitant]

REACTIONS (6)
  - Back pain [Unknown]
  - Fatigue [Not Recovered/Not Resolved]
  - Diarrhoea [Unknown]
  - Oral pain [Unknown]
  - Decreased appetite [Not Recovered/Not Resolved]
  - Blood pressure increased [Unknown]

NARRATIVE: CASE EVENT DATE: 2020
